FAERS Safety Report 9512156 (Version 1)
Quarter: 2013Q1

REPORT INFORMATION
  Report Type: Spontaneous
  Country: US (occurrence: None)
  Receive Date: 20130305
  Receipt Date: 20130305
  Transmission Date: 20140127
  Serious: Yes (Hospitalization)
  Sender: FDA-Public Use
  Company Number: 163-21880-11123801

PATIENT
  Age: 68 Year
  Sex: Female

DRUGS (5)
  1. REVLIMID (LENALIDOMIDE) (CAPSULES) [Suspect]
     Indication: PLASMA CELL MYELOMA
     Dosage: DAILY X 21 DAYS
     Route: 048
     Dates: start: 20100503, end: 2011
  2. LORATADINE (LORATADINE ) (UNKNOWN) [Concomitant]
  3. NEXIUM (ESOMEPRAZOLE) (UNKNOWN) [Concomitant]
  4. FLUTICASONE PROPIONATE (FLUTICASONE PROPIONATE) (UNKNOWN) [Concomitant]
  5. LISINOPRIL (LISINOPRIL) (UNKNOWN) [Concomitant]

REACTIONS (1)
  - Dehydration [None]
